FAERS Safety Report 8983296 (Version 1)
Quarter: 2012Q4

REPORT INFORMATION
  Report Type: 
  Country: US (occurrence: US)
  Receive Date: 20121224
  Receipt Date: 20121224
  Transmission Date: 20130627
  Serious: No
  Sender: FDA-Public Use
  Company Number: PHEH2012US024998

PATIENT
  Sex: Female

DRUGS (7)
  1. TASIGNA [Suspect]
     Route: 048
  2. OMEPRAZOLE [Concomitant]
  3. SYNTHROID [Concomitant]
  4. MECLIZINE [Concomitant]
  5. VITAMIN D [Concomitant]
  6. B COMPLEX [Concomitant]
  7. REFRESH EYE SOLUTION [Concomitant]

REACTIONS (1)
  - Rash [Unknown]
